FAERS Safety Report 8582444-X (Version None)
Quarter: 2012Q3

REPORT INFORMATION
  Report Type: 
  Country: None (occurrence: None)
  Receive Date: 20120809
  Receipt Date: 20120718
  Transmission Date: 20120928
  Serious: No
  Sender: FDA-Public Use
  Company Number: US-BAYER-2012-080127

PATIENT
  Age: 42 Year
  Sex: Female

DRUGS (1)
  1. AVELOX [Suspect]
     Indication: SINUSITIS
     Dosage: 400 MG, QD
     Route: 048
     Dates: start: 20120716, end: 20120717

REACTIONS (6)
  - DYSPNOEA [None]
  - THROAT TIGHTNESS [None]
  - RASH [None]
  - ARTHRALGIA [None]
  - ABDOMINAL PAIN UPPER [None]
  - NAUSEA [None]
